FAERS Safety Report 5928185-6 (Version None)
Quarter: 2008Q4

REPORT INFORMATION
  Report Type: 
  Country: None (occurrence: None)
  Receive Date: 20081023
  Receipt Date: 20081015
  Transmission Date: 20090506
  Serious: Yes (Other)
  Sender: FDA-Public Use
  Company Number: PHHY2008BR25053

PATIENT
  Age: 60 Year
  Sex: Female

DRUGS (3)
  1. DIOVAN HCT [Suspect]
     Indication: HYPERTENSION
     Dosage: 1 DF, QD
     Route: 048
     Dates: start: 20080501
  2. PURAN T4 [Concomitant]
     Indication: THYROID DISORDER
     Dosage: 1 DF, QD
     Route: 048
  3. LORAX                                   /BRA/ [Concomitant]
     Indication: INSOMNIA
     Dosage: 1 DF, QD ONLY WHEN REQUIRED

REACTIONS (6)
  - BACK PAIN [None]
  - COUGH [None]
  - DRY EYE [None]
  - PNEUMONIA [None]
  - RHINORRHOEA [None]
  - VOMITING [None]
